FAERS Safety Report 5714396-1 (Version None)
Quarter: 2008Q2

REPORT INFORMATION
  Report Type: 
  Country: None (occurrence: None)
  Receive Date: 20080423
  Receipt Date: 20080416
  Transmission Date: 20081010
  Serious: Yes (Hospitalization, Other)
  Sender: FDA-Public Use
  Company Number: US-JNJFOC-20080404340

PATIENT
  Sex: Female
  Weight: 64.86 kg

DRUGS (11)
  1. REMICADE [Suspect]
     Indication: RHEUMATOID ARTHRITIS
     Route: 042
  2. CELEBREX [Concomitant]
  3. CELEBREX [Concomitant]
  4. METHOTREXATE [Concomitant]
  5. DIOVAN [Concomitant]
  6. ALTACE [Concomitant]
  7. NORVASC [Concomitant]
  8. FOLIC ACID [Concomitant]
  9. FISH OIL [Concomitant]
  10. ASCORBIC ACID [Concomitant]
  11. CALCIUM WITH D [Concomitant]

REACTIONS (3)
  - MYOCARDIAL INFARCTION [None]
  - PROCEDURAL COMPLICATION [None]
  - THERAPEUTIC RESPONSE DECREASED [None]
